FAERS Safety Report 8972358 (Version 3)
Quarter: 2013Q3

REPORT INFORMATION
  Report Type: Report from Study
  Country: CA (occurrence: CA)
  Receive Date: 20121218
  Receipt Date: 20130717
  Transmission Date: 20140515
  Serious: Yes (Death, Other)
  Sender: FDA-Public Use
  Company Number: CA-ROCHE-1168883

PATIENT
  Sex: Male

DRUGS (11)
  1. VEMURAFENIB [Suspect]
     Indication: METASTATIC MALIGNANT MELANOMA
     Route: 048
     Dates: start: 201211
  2. VEMURAFENIB [Suspect]
     Route: 048
     Dates: start: 201212
  3. VEMURAFENIB [Suspect]
     Route: 048
     Dates: start: 201304
  4. ATORVASTATIN [Concomitant]
  5. EZETROL [Concomitant]
  6. AVODART [Concomitant]
  7. FLOMAX [Concomitant]
     Dosage: 1/2 PILL A DAY
     Route: 065
  8. APO-HYDRO [Concomitant]
     Dosage: 1/2 PILL A DAY
     Route: 065
  9. BABY ASPIRIN [Concomitant]
     Route: 065
  10. IBUPROFEN [Concomitant]
     Indication: MUSCULOSKELETAL PAIN
     Route: 065
  11. CILAZAPRIL [Concomitant]

REACTIONS (2)
  - Skin reaction [Unknown]
  - Disease progression [Fatal]
